FAERS Safety Report 7607984-9 (Version None)
Quarter: 2011Q3

REPORT INFORMATION
  Report Type: 
  Country: None (occurrence: None)
  Receive Date: 20110714
  Receipt Date: 20110711
  Transmission Date: 20111222
  Serious: No
  Sender: FDA-Public Use
  Company Number: US-PFIZER INC-2011156290

PATIENT
  Sex: Female
  Weight: 99.773 kg

DRUGS (9)
  1. VITAMIN D [Concomitant]
     Dosage: 50000 UNITS, WEEKLY
  2. CYMBALTA [Concomitant]
     Indication: FIBROMYALGIA
     Dosage: 120 MG, 1X/DAY
     Route: 048
  3. SEROQUEL [Concomitant]
     Indication: SLEEP DISORDER
     Dosage: 150 MG, 1X/DAY
  4. ULTRAM [Concomitant]
     Indication: FIBROMYALGIA
     Dosage: UNK
  5. LYRICA [Suspect]
     Indication: FIBROMYALGIA
     Dosage: 100 MG, 2X/DAY
     Route: 048
     Dates: start: 20110622
  6. CYMBALTA [Concomitant]
     Indication: DEPRESSION
  7. ANASTROZOLE [Concomitant]
     Indication: BREAST CANCER
     Dosage: UNK
  8. MELATONIN [Concomitant]
     Indication: SLEEP DISORDER
     Dosage: THREE TABLETS
     Route: 048
  9. ATIVAN [Concomitant]
     Indication: ANXIETY
     Dosage: 1MG IN MORNING AND 2MG AT NIGHT

REACTIONS (6)
  - ARTHRALGIA [None]
  - BONE PAIN [None]
  - OEDEMA PERIPHERAL [None]
  - BACK PAIN [None]
  - MUSCULOSKELETAL STIFFNESS [None]
  - NECK PAIN [None]
